FAERS Safety Report 25294112 (Version 2)
Quarter: 2025Q2

REPORT INFORMATION
  Report Type: Spontaneous
  Country: US (occurrence: US)
  Receive Date: 20250510
  Receipt Date: 20250603
  Transmission Date: 20250717
  Serious: No
  Sender: SANOFI AVENTIS
  Company Number: US-SA-2025SA126740

PATIENT
  Age: 41 Year
  Sex: Male

DRUGS (4)
  1. ELOCTATE [Suspect]
     Active Substance: EFMOROCTOCOG ALFA
     Indication: Factor VIII deficiency
     Dosage: 4000 IU, Q4D
     Route: 042
     Dates: start: 201507
  2. ELOCTATE [Suspect]
     Active Substance: EFMOROCTOCOG ALFA
     Indication: Factor VIII deficiency
     Dosage: 4000 IU, Q4D
     Route: 042
     Dates: start: 201507
  3. ELOCTATE [Suspect]
     Active Substance: EFMOROCTOCOG ALFA
     Route: 042
  4. ELOCTATE [Suspect]
     Active Substance: EFMOROCTOCOG ALFA
     Route: 042

REACTIONS (6)
  - Spontaneous haemorrhage [Unknown]
  - Limb injury [Unknown]
  - Traumatic haemorrhage [Unknown]
  - Traumatic haemorrhage [Unknown]
  - Joint injury [Unknown]
  - Weight increased [Unknown]

NARRATIVE: CASE EVENT DATE: 20250411
